FAERS Safety Report 8833275 (Version 3)
Quarter: 2012Q4

REPORT INFORMATION
  Report Type: 
  Country: US (occurrence: US)
  Receive Date: 20121010
  Receipt Date: 20121109
  Transmission Date: 20130627
  Serious: Yes (Other)
  Sender: FDA-Public Use
  Company Number: US-ROCHE-1143120

PATIENT
  Age: 30 Year
  Sex: Male

DRUGS (6)
  1. ACCUTANE [Suspect]
     Indication: ACNE
     Dosage: 60 mg - 80 mg
     Route: 048
     Dates: start: 199507, end: 19951125
  2. ACCUTANE [Suspect]
     Route: 048
     Dates: start: 20000914, end: 200102
  3. ACCUTANE [Suspect]
     Route: 065
     Dates: start: 200504, end: 20050926
  4. ACCUTANE [Suspect]
     Route: 065
     Dates: start: 200712, end: 200805
  5. CLARAVIS [Suspect]
     Indication: ACNE
     Route: 048
     Dates: start: 2005
  6. CLARAVIS [Suspect]
     Route: 048
     Dates: start: 2007, end: 2008

REACTIONS (5)
  - Inflammatory bowel disease [Unknown]
  - Anxiety [Unknown]
  - Blood triglycerides increased [Recovering/Resolving]
  - Nasal dryness [Unknown]
  - Lip dry [Unknown]
